FAERS Safety Report 5583140-3 (Version None)
Quarter: 2008Q1

REPORT INFORMATION
  Report Type: 
  Country: None (occurrence: None)
  Receive Date: 20080107
  Receipt Date: 20071126
  Transmission Date: 20080703
  Serious: Yes (Other)
  Sender: FDA-Public Use
  Company Number: BE-ELI_LILLY_AND_COMPANY-BE200710000989

PATIENT
  Age: 82 Year
  Sex: Female
  Weight: 40 kg

DRUGS (5)
  1. RALOXIFENE HYDROCHLORIDE [Suspect]
     Indication: OSTEOPOROSIS
     Dosage: 60 MG, DAILY (1/D)
     Route: 048
     Dates: start: 20020524, end: 20070920
  2. TILDIEM [Concomitant]
     Indication: HYPERTENSION
     Dosage: 200 MG, DAILY (1/D)
     Route: 065
     Dates: start: 19980824
  3. EMCONCOR [Concomitant]
     Indication: HYPERTENSION
     Dosage: 5 MG, DAILY (1/D)
     Route: 065
     Dates: start: 20070920
  4. ZOLPIDEM [Concomitant]
     Dosage: 1 TABLET, DAILY (1/D)
     Route: 065
     Dates: start: 20050311
  5. CALCIUM [Concomitant]
     Indication: OSTEOPOROSIS
     Dosage: 1 TABLET, DAILY (1/D)
     Route: 065
     Dates: start: 20020524

REACTIONS (1)
  - BREAST CANCER [None]
